FAERS Safety Report 4604920-4 (Version None)
Quarter: 2005Q1

REPORT INFORMATION
  Report Type: 
  Country: None (occurrence: None)
  Receive Date: 20050310
  Receipt Date: 20050310
  Transmission Date: 20050727
  Serious: Yes (Death)
  Sender: FDA-Public Use
  Company Number: None

PATIENT
  Age: 79 Year
  Sex: Female
  Weight: 72.5755 kg

DRUGS (5)
  1. LOTENSIN [Suspect]
     Indication: HYPERTENSION
     Dosage: 20 MG DAILY
     Dates: start: 20050606
  2. LOTENSIN [Suspect]
     Indication: HYPERTENSION
     Dosage: 20 MG DAILY
     Dates: start: 20051206
  3. DIGOXIN [Concomitant]
  4. ASPIRIN [Concomitant]
  5. LASIX [Concomitant]

REACTIONS (1)
  - PANCREATITIS ACUTE [None]
